FAERS Safety Report 23529199 (Version 1)
Quarter: 2024Q1

REPORT INFORMATION
  Report Type: Spontaneous
  Country: CN (occurrence: CN)
  Receive Date: 20240216
  Receipt Date: 20240216
  Transmission Date: 20240410
  Serious: Yes (Hospitalization)
  Sender: FDA-Public Use
  Company Number: CN-JNJFOC-20240230563

PATIENT
  Age: 30 Year
  Sex: Female
  Weight: 53 kg

DRUGS (3)
  1. RISPERDAL [Suspect]
     Active Substance: RISPERIDONE
     Indication: Schizophrenia
     Route: 048
     Dates: start: 20240101, end: 20240209
  2. RISPERDAL [Suspect]
     Active Substance: RISPERIDONE
     Dosage: 2 MG QD AND 3 MG QN
     Route: 048
     Dates: start: 20240126
  3. TRIHEXYPHENIDYL HYDROCHLORIDE [Concomitant]
     Active Substance: TRIHEXYPHENIDYL HYDROCHLORIDE
     Indication: Extrapyramidal disorder
     Route: 048
     Dates: start: 20240106, end: 20240209

REACTIONS (1)
  - Vaginal haemorrhage [Recovering/Resolving]

NARRATIVE: CASE EVENT DATE: 20240112
